FAERS Safety Report 15434299 (Version 1)
Quarter: 2018Q3

REPORT INFORMATION
  Report Type: Spontaneous
  Country: FR (occurrence: FR)
  Receive Date: 20180927
  Receipt Date: 20180927
  Transmission Date: 20181010
  Serious: Yes (Other)
  Sender: FDA-Public Use
  Company Number: PHHY2018FR105927

PATIENT
  Sex: Female
  Weight: 95 kg

DRUGS (5)
  1. MEDIATOR [Suspect]
     Active Substance: BENFLUOREX
     Indication: CENTRAL OBESITY
     Dosage: 150 MG, Q8H (1 DF,TID)
     Route: 048
     Dates: start: 2002, end: 2009
  2. COTRIATEC [Suspect]
     Active Substance: HYDROCHLOROTHIAZIDE\RAMIPRIL
     Indication: HYPERTENSION
     Dosage: 1 DF,QD
     Route: 048
     Dates: start: 2007
  3. ZANIDIP [Concomitant]
     Active Substance: LERCANIDIPINE HYDROCHLORIDE
     Indication: PRODUCT USED FOR UNKNOWN INDICATION
     Dosage: UNK
     Route: 065
  4. TENORDATE [Suspect]
     Active Substance: ATENOLOL\NIFEDIPINE
     Indication: HYPERTENSION
     Dosage: 1 DF,QD
     Route: 048
     Dates: start: 2007
  5. ROSUVASTATIN CALCIUM. [Suspect]
     Active Substance: ROSUVASTATIN CALCIUM
     Indication: HYPERCHOLESTEROLAEMIA
     Dosage: 5 MG, QD
     Route: 048
     Dates: start: 2004

REACTIONS (6)
  - Aortic valve incompetence [Unknown]
  - Arrhythmia [Unknown]
  - Dizziness [Unknown]
  - Vertigo [Unknown]
  - Bradycardia [Unknown]
  - Malaise [Unknown]

NARRATIVE: CASE EVENT DATE: 2007
